FAERS Safety Report 16892650 (Version 3)
Quarter: 2023Q2

REPORT INFORMATION
  Report Type: Spontaneous
  Country: GB (occurrence: GB)
  Receive Date: 20191007
  Receipt Date: 20230518
  Transmission Date: 20230722
  Serious: Yes (Disabling, Other)
  Sender: FDA-Public Use
  Company Number: None

PATIENT
  Age: 49 Year
  Sex: Male

DRUGS (3)
  1. CIPROFLOXACIN [Suspect]
     Active Substance: CIPROFLOXACIN
     Indication: Prostatitis
     Dosage: 1000 MILLIGRAM, QD
     Route: 048
     Dates: start: 20180801
  2. CIPROFLOXACIN [Suspect]
     Active Substance: CIPROFLOXACIN
     Dosage: 500 MILLIGRAM, BID
     Route: 048
     Dates: start: 20180801, end: 20180828
  3. INFLUENZA VIRUS VACCINE [Concomitant]
     Active Substance: INFLUENZA VIRUS VACCINE
     Indication: Influenza immunisation
     Dosage: UNK (START DATE: 12-SEP-2018)
     Route: 065
     Dates: end: 20180912

REACTIONS (46)
  - Palpitations [Recovering/Resolving]
  - Balance disorder [Unknown]
  - Pain in extremity [Recovering/Resolving]
  - Feeling abnormal [Unknown]
  - Renal pain [Unknown]
  - Hyperacusis [Unknown]
  - Abdominal distension [Unknown]
  - Photophobia [Unknown]
  - Nephrolithiasis [Unknown]
  - Joint noise [Recovering/Resolving]
  - Disturbance in attention [Unknown]
  - Fatigue [Recovering/Resolving]
  - Altered visual depth perception [Unknown]
  - Neck pain [Unknown]
  - Acne [Recovering/Resolving]
  - Coordination abnormal [Unknown]
  - Sleep disorder [Recovering/Resolving]
  - Lymphadenopathy [Unknown]
  - Tendon pain [Unknown]
  - Pruritus [Unknown]
  - Dizziness [Unknown]
  - Head discomfort [Unknown]
  - Memory impairment [Recovering/Resolving]
  - Thirst [Recovering/Resolving]
  - Faeces soft [Unknown]
  - Arthralgia [Recovering/Resolving]
  - Tinnitus [Recovering/Resolving]
  - Pain in jaw [Unknown]
  - Rash [Unknown]
  - Headache [Not Recovered/Not Resolved]
  - Skin sensitisation [Unknown]
  - Eye pain [Unknown]
  - Sensitive skin [Unknown]
  - Bone disorder [Unknown]
  - Flatulence [Not Recovered/Not Resolved]
  - Back pain [Recovering/Resolving]
  - Motion sickness [Unknown]
  - Appetite disorder [Unknown]
  - Immune system disorder [Unknown]
  - Osteoporosis [Unknown]
  - Trigeminal neuralgia [Unknown]
  - Metabolic disorder [Unknown]
  - Tendon disorder [Unknown]
  - Visual acuity reduced [Not Recovered/Not Resolved]
  - Photosensitivity reaction [Not Recovered/Not Resolved]
  - Insomnia [Recovering/Resolving]

NARRATIVE: CASE EVENT DATE: 20180901
